FAERS Safety Report 4307183-2 (Version None)
Quarter: 2004Q1

REPORT INFORMATION
  Report Type: 
  Country: None (occurrence: None)
  Receive Date: 20040225
  Receipt Date: 20040209
  Transmission Date: 20041129
  Serious: Yes (Death, Hospitalization)
  Sender: FDA-Public Use
  Company Number: 7448

PATIENT
  Age: 19 Month
  Sex: Male

DRUGS (9)
  1. METHOTREXATE [Suspect]
     Indication: LYMPHOMA
     Dosage: 3 G/M2 ONCE/8 G/M2 ONCE/10 MG PER_CYCLE; IV/IV/IT
     Route: 042
  2. CYTARABINE [Suspect]
     Indication: PROPHYLAXIS
     Dosage: 20MG PER_CYCLE/150 MG/M2 PER_CYCLE; IT/IV
     Route: 042
  3. CYCLOPHOSPHAMIDE [Suspect]
     Indication: LYMPHOMA
     Dosage: 250 MG/M2 ONCE/1 G/M2 PER_CYCLE/300 MG/M2 ONCE, IV
     Route: 042
  4. DEXAMETHASONE ACETATE [Suspect]
     Indication: LYMPHOMA
     Dosage: 10 MG/M2 PER_CYCLE; IV
     Route: 042
  5. EPIRUBICIN [Suspect]
     Indication: LYMPHOMA
     Dosage: 60 MG/M2 PER_CYCLE/80 MG/M2 PER_CYCLE; IV
     Route: 042
  6. ETOPOSIDE [Suspect]
     Indication: LYMPHOMA
     Dosage: 100 MG/M2 PER_CYCLE, IV
     Route: 042
  7. HYDROCORTISONE [Suspect]
     Indication: LYMPHOMA
     Dosage: 20 MG PER_CYCLE; IV
     Route: 042
  8. VINCRISTINE SULFATE [Suspect]
     Indication: LYMPHOMA
     Dosage: 1.5 MG/M2 ONCE; IV
     Route: 042
  9. VINDENSINE [Suspect]
     Indication: LYMPHOMA
     Dosage: 3 MG/M2 ONCE; IV
     Route: 042

REACTIONS (20)
  - ABDOMINAL NEOPLASM [None]
  - BONE MARROW DEPRESSION [None]
  - DISSEMINATED INTRAVASCULAR COAGULATION [None]
  - FOOT FRACTURE [None]
  - HEPATOMEGALY [None]
  - HERPES ZOSTER [None]
  - HYPOXIA [None]
  - INFECTION IN AN IMMUNOCOMPROMISED HOST [None]
  - LEUKOPENIA [None]
  - LYMPHADENOPATHY [None]
  - LYMPHOMA [None]
  - MASS [None]
  - NOSOCOMIAL INFECTION [None]
  - OSTEOLYSIS [None]
  - PNEUMONIA [None]
  - PULMONARY HAEMORRHAGE [None]
  - RENAL FAILURE ACUTE [None]
  - SPLENOMEGALY [None]
  - THROMBOCYTOPENIA [None]
  - VARICELLA [None]
